FAERS Safety Report 12892819 (Version 1)
Quarter: 2016Q4

REPORT INFORMATION
  Report Type: Spontaneous
  Country: US (occurrence: US)
  Receive Date: 20161027
  Receipt Date: 20161027
  Transmission Date: 20170207
  Serious: Yes (Hospitalization, Disabling, Other)
  Sender: FDA-Public Use
  Company Number: None

PATIENT
  Age: 57 Year
  Sex: Female
  Weight: 49.5 kg

DRUGS (9)
  1. CEREFOLIN [Concomitant]
     Active Substance: CYANOCOBALAMIN CO-57\LEVOMEFOLATE CALCIUM\PYRIDOXINE HYDROCHLORIDE\RIBOFLAVIN
  2. VITAMIN D [Concomitant]
     Active Substance: CHOLECALCIFEROL
  3. CIPROFLOXACIN. [Suspect]
     Active Substance: CIPROFLOXACIN
     Indication: INFECTION
     Route: 042
  4. CIPROFLOXACIN. [Suspect]
     Active Substance: CIPROFLOXACIN
     Indication: LYME DISEASE
     Route: 042
  5. VICODIN [Concomitant]
     Active Substance: ACETAMINOPHEN\HYDROCODONE BITARTRATE
  6. VITAMIN B COMPLEX [Concomitant]
     Active Substance: CYANOCOBALAMIN\DEXPANTHENOL\NIACINAMIDE\PYRIDOXINE HYDROCHLORIDE\RIBOFLAVIN 5^-PHOSPHATE SODIUM\THIAMINE HYDROCHLORIDE\VITAMIN B COMPLEX
  7. NEURONTIN [Concomitant]
     Active Substance: GABAPENTIN
  8. TRAZODONE [Concomitant]
     Active Substance: TRAZODONE HYDROCHLORIDE
  9. VITAMIN C [Concomitant]
     Active Substance: ASCORBIC ACID

REACTIONS (15)
  - Blood zinc decreased [None]
  - Nausea [None]
  - Dyspnoea [None]
  - Pain in extremity [None]
  - Spinal pain [None]
  - Serum ferritin decreased [None]
  - Myalgia [None]
  - Arthralgia [None]
  - Fatigue [None]
  - Tinnitus [None]
  - Disability [None]
  - Tendon pain [None]
  - Pelvic pain [None]
  - Ligament pain [None]
  - Disturbance in attention [None]

NARRATIVE: CASE EVENT DATE: 20160601
